FAERS Safety Report 24443900 (Version 1)
Quarter: 2024Q4

REPORT INFORMATION
  Report Type: Report from Study
  Country: US (occurrence: US)
  Receive Date: 20241016
  Receipt Date: 20241016
  Transmission Date: 20250114
  Serious: Yes (Death)
  Sender: BAYER HEALTHCARE PHARMACEUTICALS INC.
  Company Number: US-BAYER-2024A147139

PATIENT
  Age: 80 Year
  Sex: Female
  Weight: 37.642 kg

DRUGS (17)
  1. ADEMPAS [Suspect]
     Active Substance: RIOCIGUAT
     Indication: Pulmonary arterial hypertension
     Dosage: UNK
     Dates: start: 20240315
  2. ADEMPAS [Suspect]
     Active Substance: RIOCIGUAT
     Indication: Pulmonary arterial hypertension
     Dosage: 2.5 MG, TID
     Route: 048
  3. CRESTOR [Concomitant]
     Active Substance: ROSUVASTATIN CALCIUM
  4. MIDODRINE HYDROCHLORIDE [Concomitant]
     Active Substance: MIDODRINE HYDROCHLORIDE
  5. CARVEDILOL [Concomitant]
     Active Substance: CARVEDILOL
  6. HUMALOG [Concomitant]
     Active Substance: INSULIN LISPRO
  7. INFED [Concomitant]
     Active Substance: IRON DEXTRAN
  8. MYCOPHENOLIC ACID [Concomitant]
     Active Substance: MYCOPHENOLIC ACID
  9. FAMOTIDINE [Concomitant]
     Active Substance: FAMOTIDINE
  10. LANTUS SOLOSTAR [Concomitant]
     Active Substance: INSULIN GLARGINE
  11. OPSUMIT [Concomitant]
     Active Substance: MACITENTAN
  12. OXYGEN [Concomitant]
     Active Substance: OXYGEN
  13. BUMETANIDE [Concomitant]
     Active Substance: BUMETANIDE
  14. FOLIC ACID\IRON [Concomitant]
     Active Substance: FOLIC ACID\IRON
  15. NIFEDIPINE [Concomitant]
     Active Substance: NIFEDIPINE
  16. TACROLIMUS [Concomitant]
     Active Substance: TACROLIMUS
  17. METOLAZONE [Concomitant]
     Active Substance: METOLAZONE

REACTIONS (1)
  - Death [Fatal]

NARRATIVE: CASE EVENT DATE: 20241008
